FAERS Safety Report 11671874 (Version 2)
Quarter: 2016Q4

REPORT INFORMATION
  Report Type: Report from Study
  Country: US (occurrence: US)
  Receive Date: 20151028
  Receipt Date: 20161123
  Transmission Date: 20170206
  Serious: Yes (Death)
  Sender: FDA-Public Use
  Company Number: PHEH2014US024197

PATIENT
  Age: 71 Year
  Sex: Female
  Weight: 86.18 kg

DRUGS (2)
  1. MYFORTIC [Suspect]
     Active Substance: MYCOPHENOLATE SODIUM
     Indication: RENAL TRANSPLANT
     Dosage: 540 MG, BID
     Route: 048
     Dates: start: 20140818
  2. NEORAL [Suspect]
     Active Substance: CYCLOSPORINE
     Indication: RENAL TRANSPLANT
     Dosage: 50 MG, BID
     Route: 048
     Dates: start: 20130211

REACTIONS (5)
  - Dizziness [Unknown]
  - Nasopharyngitis [Not Recovered/Not Resolved]
  - Death [Fatal]
  - Upper respiratory tract infection [Recovering/Resolving]
  - Blood creatinine increased [Unknown]

NARRATIVE: CASE EVENT DATE: 20141127
